FAERS Safety Report 4782943-2 (Version None)
Quarter: 2005Q3

REPORT INFORMATION
  Report Type: 
  Country: None (occurrence: None)
  Receive Date: 20050929
  Receipt Date: 20050915
  Transmission Date: 20060218
  Serious: Yes (Other)
  Sender: FDA-Public Use
  Company Number: FRWYE985916SEP05

PATIENT
  Age: 46 Year
  Sex: Male

DRUGS (5)
  1. ENBREL [Suspect]
     Indication: PSORIATIC ARTHROPATHY
     Route: 058
     Dates: start: 20050301
  2. NOVATREX [Concomitant]
     Dosage: 15 MG WEEKLY
     Route: 048
     Dates: start: 20041101
  3. KETOPROFEN [Concomitant]
     Dosage: UNKNOWN
     Route: 048
  4. ORAL ANTIDIABETICS [Concomitant]
     Indication: DIABETES MELLITUS NON-INSULIN-DEPENDENT
     Dosage: UNKNOWN
  5. UNSPECIFIED ANTIHYPERTENSIVE AGENT [Concomitant]
     Indication: HYPERTENSION
     Dosage: UNKNOWN

REACTIONS (2)
  - DIABETIC NEUROPATHY [None]
  - MONONEUROPATHY MULTIPLEX [None]
